FAERS Safety Report 10595251 (Version 1)
Quarter: 2014Q4

REPORT INFORMATION
  Report Type: Spontaneous
  Country: DE (occurrence: None)
  Receive Date: 20141118
  Receipt Date: 20141118
  Transmission Date: 20150529
  Serious: No
  Sender: FDA-Public Use
  Company Number: DE-LHC-2014104

PATIENT
  Sex: Male

DRUGS (1)
  1. CONOXIA [Suspect]
     Active Substance: OXYGEN
     Indication: CORONARY ARTERY DISEASE
     Dosage: 2 1/MIN 16-24 HOURS
     Route: 055
     Dates: start: 20140904

REACTIONS (1)
  - Headache [None]

NARRATIVE: CASE EVENT DATE: 20141023
